FAERS Safety Report 15936068 (Version 5)
Quarter: 2023Q4

REPORT INFORMATION
  Report Type: Spontaneous
  Country: FR (occurrence: FR)
  Receive Date: 20190208
  Receipt Date: 20231218
  Transmission Date: 20240109
  Serious: Yes (Life-Threatening, Hospitalization, Other)
  Sender: FDA-Public Use
  Company Number: FR-AUROBINDO-AUR-APL-2019-006390

PATIENT
  Age: 45 Year
  Sex: Female
  Weight: 119 kg

DRUGS (36)
  1. PANTOPRAZOLE SODIUM [Suspect]
     Active Substance: PANTOPRAZOLE SODIUM
     Indication: Stress ulcer
     Dosage: 20 MILLIGRAM, ONCE A DAY
     Route: 065
     Dates: start: 20181020, end: 20181113
  2. PANTOPRAZOLE SODIUM [Suspect]
     Active Substance: PANTOPRAZOLE SODIUM
     Dosage: 20 MILLIGRAM, ONCE A DAY (20 MG, QD)
     Route: 048
     Dates: start: 20181116, end: 20181230
  3. PANTOPRAZOLE SODIUM [Suspect]
     Active Substance: PANTOPRAZOLE SODIUM
     Dosage: 20 MILLIGRAM, ONCE A DAY (20 MG, QD)
     Route: 048
     Dates: start: 20181121, end: 20190101
  4. MEROPENEM [Suspect]
     Active Substance: MEROPENEM
     Indication: Pathogen resistance
     Dosage: 4 GRAM, 29TH DEC TO 5TH JAN
     Route: 065
  5. MEROPENEM [Suspect]
     Active Substance: MEROPENEM
     Indication: Enterobacter infection
     Dosage: 6 GRAM, 26TH NOV TO 28TH DEC
     Route: 065
     Dates: start: 20181126, end: 20181228
  6. MEROPENEM [Suspect]
     Active Substance: MEROPENEM
     Indication: Osteitis
     Dosage: 2 GRAM, TWO TIMES A DAY (2 G, BID (2/DAY) EVERY 12 HOURS)
     Route: 042
     Dates: start: 20181229, end: 20190105
  7. MEROPENEM [Suspect]
     Active Substance: MEROPENEM
     Indication: Meningitis
     Dosage: 2 GRAM, ONCE A DAY (2 G, QD (1/DAY))
     Route: 065
     Dates: start: 20190125, end: 20190125
  8. VANCOMYCIN [Suspect]
     Active Substance: VANCOMYCIN
     Indication: Osteitis
     Dosage: UNK
     Route: 042
     Dates: start: 20181127, end: 20181228
  9. VANCOMYCIN [Suspect]
     Active Substance: VANCOMYCIN
     Indication: Meningitis
  10. VANCOMYCIN [Suspect]
     Active Substance: VANCOMYCIN
     Indication: Enterobacter infection
  11. VANCOMYCIN [Suspect]
     Active Substance: VANCOMYCIN
     Indication: Pathogen resistance
  12. VANCOMYCIN [Suspect]
     Active Substance: VANCOMYCIN
     Indication: Device related infection
  13. PANTOPRAZOLE [Suspect]
     Active Substance: PANTOPRAZOLE
     Indication: Product used for unknown indication
     Dosage: UNK
     Route: 065
  14. FERROUS SULFATE [Suspect]
     Active Substance: FERROUS SULFATE
     Indication: Iron deficiency
     Dosage: 80 MILLIGRAM, TWO TIMES A DAY (80 MG, BID)
     Route: 048
     Dates: start: 20181121, end: 20190102
  15. FOSFOMYCIN [Suspect]
     Active Substance: FOSFOMYCIN
     Indication: Meningitis
     Dosage: 4 GRAM, FOUR TIMES/DAY (4 G, QID)
     Route: 042
     Dates: start: 20181229, end: 20190101
  16. FOSFOMYCIN [Suspect]
     Active Substance: FOSFOMYCIN
     Indication: Osteitis
     Dosage: 16 GRAM, ONCE A DAY (4 G, QID, EVERY 6 HOURS)
     Route: 042
     Dates: start: 20181229, end: 20190101
  17. FOSFOMYCIN [Suspect]
     Active Substance: FOSFOMYCIN
     Indication: Infection
     Dosage: 4 GRAM, TWO TIMES A DAY (4 G, BID)
     Route: 042
     Dates: start: 20190102, end: 20190107
  18. FOSFOMYCIN [Suspect]
     Active Substance: FOSFOMYCIN
     Indication: Enterobacter infection
     Dosage: 4 GRAM, FOUR TIMES/DAY (4 G, QID)
     Route: 042
     Dates: start: 20190108, end: 20190108
  19. FOSFOMYCIN [Suspect]
     Active Substance: FOSFOMYCIN
     Dosage: 16 GRAM, ONCE A DAY (4 G, QID)
     Route: 042
     Dates: start: 20190108, end: 20190108
  20. AZACTAM [Suspect]
     Active Substance: AZTREONAM
     Indication: Product used for unknown indication
     Dosage: 6 GRAM, ONCE A DAY (2 G, TID (3/DAY) EVERY 8 HOURS)
     Route: 065
     Dates: start: 20190108, end: 20190115
  21. CASPOFUNGIN [Suspect]
     Active Substance: CASPOFUNGIN
     Indication: Product used for unknown indication
     Dosage: UNK
     Route: 065
     Dates: start: 20190108
  22. COLISTIN [Suspect]
     Active Substance: COLISTIN
     Indication: Product used for unknown indication
     Dosage: UNK
     Route: 065
     Dates: start: 20190108
  23. AZTREONAM [Concomitant]
     Active Substance: AZTREONAM
     Indication: Product used for unknown indication
     Dosage: 2 GRAM, 3 TIMES A DAY (2 G, TID)
     Route: 065
  24. CITALOPRAM [Concomitant]
     Active Substance: CITALOPRAM HYDROBROMIDE
     Indication: Product used for unknown indication
     Dosage: 20 MG
     Route: 065
     Dates: start: 20190102, end: 20190131
  25. SODIUM FEREDETATE [Concomitant]
     Active Substance: SODIUM FEREDETATE
     Indication: Product used for unknown indication
     Dosage: 15 MILLILITER, TWO TIMES A DAY (15 ML, BID)
     Route: 065
  26. FERROUS FUMARATE [Concomitant]
     Active Substance: FERROUS FUMARATE
     Indication: Product used for unknown indication
     Dosage: UNK
     Route: 065
     Dates: start: 20190103
  27. LANSOPRAZOLE [Concomitant]
     Active Substance: LANSOPRAZOLE
     Indication: Product used for unknown indication
     Dosage: 15 MILLIGRAM, ONCE A DAY (15 MG, QD)
     Route: 065
     Dates: start: 20190101
  28. MEROPENEM [Concomitant]
     Active Substance: MEROPENEM
     Indication: Osteitis
     Dosage: 2 GRAM, 3 TIMES A DAY (2 G, TID)
     Route: 042
     Dates: start: 20181127, end: 20190105
  29. MEROPENEM [Concomitant]
     Active Substance: MEROPENEM
     Indication: Meningitis
  30. MEROPENEM [Concomitant]
     Active Substance: MEROPENEM
     Indication: Enterobacter infection
  31. MEROPENEM [Concomitant]
     Active Substance: MEROPENEM
     Indication: Device related infection
  32. LEVETIRACETAM [Concomitant]
     Active Substance: LEVETIRACETAM
     Indication: Product used for unknown indication
     Dosage: UNK
     Route: 065
  33. ENOXAPARIN [Concomitant]
     Active Substance: ENOXAPARIN
     Indication: Product used for unknown indication
     Dosage: UNK
     Route: 065
  34. BISOPROLOL [Concomitant]
     Active Substance: BISOPROLOL\BISOPROLOL FUMARATE
     Indication: Product used for unknown indication
     Dosage: UNK
     Route: 065
  35. GADOTERATE MEGLUMINE [Concomitant]
     Active Substance: GADOTERATE MEGLUMINE
     Indication: Product used for unknown indication
     Dosage: UNK
     Route: 065
  36. POTASSIUM [Concomitant]
     Active Substance: POTASSIUM
     Indication: Product used for unknown indication
     Dosage: UNK
     Route: 065

REACTIONS (21)
  - Vancomycin infusion reaction [Not Recovered/Not Resolved]
  - Rash [Recovered/Resolved]
  - Erythema [Not Recovered/Not Resolved]
  - Pruritus [Not Recovered/Not Resolved]
  - Blood albumin decreased [Unknown]
  - Skin exfoliation [Not Recovered/Not Resolved]
  - Oedema peripheral [Not Recovered/Not Resolved]
  - Rash [Not Recovered/Not Resolved]
  - Immunoglobulins decreased [Unknown]
  - Agranulocytosis [Recovering/Resolving]
  - Hepatic cytolysis [Recovered/Resolved]
  - Blood creatinine increased [Unknown]
  - Type IV hypersensitivity reaction [Recovering/Resolving]
  - Renal failure [Recovering/Resolving]
  - Drug reaction with eosinophilia and systemic symptoms [Recovering/Resolving]
  - Immunoglobulins decreased [Unknown]
  - Neutrophil count decreased [Unknown]
  - Neutropenia [Recovered/Resolved]
  - Lymphopenia [Unknown]
  - Eosinophilia [Recovered/Resolved]
  - Off label use [Unknown]

NARRATIVE: CASE EVENT DATE: 20181027
